FAERS Safety Report 18887946 (Version 1)
Quarter: 2021Q1

REPORT INFORMATION
  Report Type: Spontaneous
  Country: JP (occurrence: JP)
  Receive Date: 20210212
  Receipt Date: 20210212
  Transmission Date: 20210420
  Serious: Yes (Other)
  Sender: FDA-Public Use
  Company Number: JP-009507513-2101JPN002043J

PATIENT
  Age: 70 Year
  Sex: Male

DRUGS (1)
  1. NOXAFIL [Suspect]
     Active Substance: POSACONAZOLE
     Indication: ANTIFUNGAL PROPHYLAXIS
     Dosage: UNK
     Route: 048
     Dates: start: 202012

REACTIONS (4)
  - Bacteraemia [Unknown]
  - Diarrhoea [Unknown]
  - Pyrexia [Recovered/Resolved]
  - Bacterial translocation [Unknown]

NARRATIVE: CASE EVENT DATE: 2020
